FAERS Safety Report 7568332-6 (Version None)
Quarter: 2011Q2

REPORT INFORMATION
  Report Type: 
  Country: None (occurrence: None)
  Receive Date: 20110623
  Receipt Date: 20110620
  Transmission Date: 20111010
  Serious: Yes (Hospitalization)
  Sender: FDA-Public Use
  Company Number: A0899173A

PATIENT
  Age: 79 Year
  Sex: Male

DRUGS (1)
  1. AVANDIA [Suspect]
     Indication: DIABETES MELLITUS
     Dosage: 8MG PER DAY
     Route: 048
     Dates: end: 20060101

REACTIONS (5)
  - CARDIAC FAILURE CONGESTIVE [None]
  - LUNG DISORDER [None]
  - MYOCARDIAL STRAIN [None]
  - OEDEMA [None]
  - ARRHYTHMIA [None]
